FAERS Safety Report 8785459 (Version 2)
Quarter: 2015Q1

REPORT INFORMATION
  Report Type: Report from Study
  Country: US (occurrence: US)
  Receive Date: 20120914
  Receipt Date: 20150116
  Transmission Date: 20150721
  Serious: Yes (Death)
  Sender: FDA-Public Use
  Company Number: US-ROCHE-1127379

PATIENT
  Sex: Female

DRUGS (3)
  1. XELODA [Suspect]
     Active Substance: CAPECITABINE
     Indication: GASTRIC CANCER
     Dosage: FREQUENCY: 2 TABLETS TWO TIMES IN A DAY FOR 10 DAYS AND THEN OFF FOR 10 DAYS
     Route: 048
  2. TAXOL [Concomitant]
     Active Substance: PACLITAXEL
  3. CISPLATIN. [Concomitant]
     Active Substance: CISPLATIN

REACTIONS (1)
  - Death [Fatal]
